FAERS Safety Report 4935559-9 (Version None)
Quarter: 2006Q1

REPORT INFORMATION
  Report Type: 
  Country: None (occurrence: None)
  Receive Date: 20060307
  Receipt Date: 20060223
  Transmission Date: 20060701
  Serious: Yes (Hospitalization)
  Sender: FDA-Public Use
  Company Number: 20051104508

PATIENT
  Age: 37 Year
  Sex: Female
  Weight: 59.5 kg

DRUGS (2)
  1. UNSPECIFIED DRUG [Suspect]
     Indication: HIV INFECTION
     Dosage: 2TAB PER DAY
     Route: 048
     Dates: start: 20051103
  2. COMBIVIR [Suspect]
     Indication: HIV INFECTION
     Dosage: 1TAB TWICE PER DAY
     Dates: start: 20051103

REACTIONS (2)
  - ABDOMINAL PAIN [None]
  - CONSTIPATION [None]
